FAERS Safety Report 10088295 (Version 1)
Quarter: 2014Q2

REPORT INFORMATION
  Report Type: Spontaneous
  Country: US (occurrence: US)
  Receive Date: 20140421
  Receipt Date: 20140421
  Transmission Date: 20141212
  Serious: Yes (Other)
  Sender: FDA-Public Use
  Company Number: US-BRISTOL-MYERS SQUIBB COMPANY-20625224

PATIENT
  Sex: Female

DRUGS (1)
  1. ABILIFY TABS [Suspect]

REACTIONS (1)
  - Breast cancer [Unknown]
